FAERS Safety Report 16825137 (Version 2)
Quarter: 2019Q3

REPORT INFORMATION
  Report Type: Spontaneous
  Country: JP (occurrence: JP)
  Receive Date: 20190919
  Receipt Date: 20190927
  Transmission Date: 20191005
  Serious: Yes (Hospitalization)
  Sender: FDA-Public Use
  Company Number: PHJP2019JP012039

PATIENT
  Age: 84 Year
  Sex: Female

DRUGS (4)
  1. GLUBES [Concomitant]
     Active Substance: MITIGLINIDE CALCIUM HYDRATE\VOGLIBOSE
     Indication: PRODUCT USED FOR UNKNOWN INDICATION
     Dosage: UNK (MITIGLINIDE CALCIUM HYDRATE 10 MG/VOGLIBOSE 0.2 MG), UNK
     Route: 065
     Dates: start: 20170830, end: 20190828
  2. EQUMET [Suspect]
     Active Substance: METFORMIN HYDROCHLORIDE\VILDAGLIPTIN
     Indication: TYPE 2 DIABETES MELLITUS
     Dosage: 1DF (METFORMIN 500 MG/VILDAGLIPTIN 50 MG), UNK
     Route: 048
     Dates: start: 20170118, end: 20190828
  3. EQUMET [Suspect]
     Active Substance: METFORMIN HYDROCHLORIDE\VILDAGLIPTIN
     Dosage: UNK
     Route: 048
  4. REZALTAS [Concomitant]
     Active Substance: AZELNIDIPINE\OLMESARTAN MEDOXOMIL
     Indication: PRODUCT USED FOR UNKNOWN INDICATION
     Dosage: UNK (MEDOXOMIL 10 MG/AZELNIDIPINE 8 MG), UNK
     Route: 048
     Dates: start: 20161214, end: 20190906

REACTIONS (2)
  - Purpura [Recovering/Resolving]
  - Pyrexia [Recovered/Resolved]

NARRATIVE: CASE EVENT DATE: 20190824
